FAERS Safety Report 12216846 (Version 1)
Quarter: 2016Q1

REPORT INFORMATION
  Report Type: Spontaneous
  Country: US (occurrence: US)
  Receive Date: 20160329
  Receipt Date: 20160329
  Transmission Date: 20160526
  Serious: No
  Sender: FDA-Public Use
  Company Number: US-BIOGEN-2016BI00205932

PATIENT
  Sex: Female

DRUGS (1)
  1. TYSABRI [Suspect]
     Active Substance: NATALIZUMAB
     Indication: MULTIPLE SCLEROSIS
     Route: 042
     Dates: start: 20090918, end: 20100513

REACTIONS (5)
  - Multiple sclerosis relapse [Unknown]
  - Musculoskeletal disorder [Not Recovered/Not Resolved]
  - Muscular weakness [Recovered/Resolved]
  - Hemianaesthesia [Unknown]
  - Paraesthesia [Not Recovered/Not Resolved]
